FAERS Safety Report 15177847 (Version 1)
Quarter: 2018Q3

REPORT INFORMATION
  Report Type: Report from Study
  Country: US (occurrence: US)
  Receive Date: 20180720
  Receipt Date: 20180720
  Transmission Date: 20181010
  Serious: No
  Sender: FDA-Public Use
  Company Number: US-AMGEN-USASL2018085610

PATIENT
  Age: 64 Year
  Sex: Female
  Weight: 57.14 kg

DRUGS (2)
  1. REPATHA [Suspect]
     Active Substance: EVOLOCUMAB
     Indication: HYPERCHOLESTEROLAEMIA
     Dosage: 140 MG, Q2WK
     Route: 065
     Dates: start: 20180604
  2. REPATHA [Suspect]
     Active Substance: EVOLOCUMAB
     Indication: LIPIDS ABNORMAL

REACTIONS (6)
  - Nasopharyngitis [Unknown]
  - Injection site pain [Unknown]
  - Abdominal discomfort [Unknown]
  - Tinnitus [Unknown]
  - Nausea [Recovered/Resolved]
  - Sleep disorder due to a general medical condition [Unknown]

NARRATIVE: CASE EVENT DATE: 201806
